FAERS Safety Report 12079878 (Version 1)
Quarter: 2016Q1

REPORT INFORMATION
  Report Type: Spontaneous
  Country: US (occurrence: US)
  Receive Date: 20160216
  Receipt Date: 20160216
  Transmission Date: 20160526
  Serious: No
  Sender: FDA-Public Use
  Company Number: US-PFIZER INC-2016081033

PATIENT
  Sex: Female

DRUGS (1)
  1. LYRICA [Suspect]
     Active Substance: PREGABALIN
     Dosage: 1 DF, UNK

REACTIONS (5)
  - Migraine [Unknown]
  - Abdominal discomfort [Unknown]
  - Malaise [Unknown]
  - Dizziness [Unknown]
  - Heart rate abnormal [Unknown]
